FAERS Safety Report 8011537-0 (Version None)
Quarter: 2011Q4

REPORT INFORMATION
  Report Type: 
  Country: None (occurrence: None)
  Receive Date: 20111228
  Receipt Date: 20111222
  Transmission Date: 20120403
  Serious: Yes (Other)
  Sender: FDA-Public Use
  Company Number: FR-B.I. PHARMACEUTICALS,INC./RIDGEFIELD-2011-FF-01217FF

PATIENT
  Age: 57 Year
  Sex: Male

DRUGS (2)
  1. PRADAXA [Suspect]
     Indication: KNEE ARTHROPLASTY
     Route: 048
     Dates: start: 20111001
  2. ACETAMINOPHEN [Concomitant]
     Indication: PAIN

REACTIONS (1)
  - PULMONARY EMBOLISM [None]
